FAERS Safety Report 19925380 (Version 1)
Quarter: 2021Q4

REPORT INFORMATION
  Report Type: Spontaneous
  Country: FR (occurrence: FR)
  Receive Date: 20211006
  Receipt Date: 20211006
  Transmission Date: 20220303
  Serious: Yes (Hospitalization)
  Sender: FDA-Public Use
  Company Number: None

PATIENT
  Age: 86 Year
  Sex: Male
  Weight: 73.3 kg

DRUGS (8)
  1. BISOPROLOL [Suspect]
     Active Substance: BISOPROLOL
     Indication: Hypertension
     Dosage: 5 MILLIGRAM, QD
     Route: 048
  2. IMOVANE [Suspect]
     Active Substance: ZOPICLONE
     Indication: Product used for unknown indication
     Dosage: 3.75 MILLIGRAM, QD
     Route: 048
  3. XANAX [Suspect]
     Active Substance: ALPRAZOLAM
     Indication: Depression
     Dosage: 0.25 MILLIGRAM, QD
     Route: 048
  4. NICORANDIL [Suspect]
     Active Substance: NICORANDIL
     Indication: Angina pectoris
     Dosage: 20 MILLIGRAM, QD
     Route: 048
     Dates: start: 20210424
  5. PAROXETINE HYDROCHLORIDE [Concomitant]
     Active Substance: PAROXETINE HYDROCHLORIDE
     Dosage: UNK
  6. ELIQUIS [Concomitant]
     Active Substance: APIXABAN
     Dosage: UNK
  7. ESOMEPRAZOLE. [Concomitant]
     Active Substance: ESOMEPRAZOLE MAGNESIUM
     Dosage: UNK
  8. ATORVASTATIN [Concomitant]
     Active Substance: ATORVASTATIN
     Dosage: UNK

REACTIONS (2)
  - Orthostatic hypotension [Recovered/Resolved]
  - Fall [Recovered/Resolved]

NARRATIVE: CASE EVENT DATE: 20210424
